FAERS Safety Report 11852382 (Version 1)
Quarter: 2015Q4

REPORT INFORMATION
  Report Type: Spontaneous
  Country: AR (occurrence: AR)
  Receive Date: 20151218
  Receipt Date: 20151218
  Transmission Date: 20160305
  Serious: Yes (Other)
  Sender: FDA-Public Use
  Company Number: PHHY2015AR155855

PATIENT
  Age: 59 Year
  Sex: Male

DRUGS (4)
  1. METFORMIN [Suspect]
     Active Substance: METFORMIN HYDROCHLORIDE
     Indication: PRODUCT USED FOR UNKNOWN INDICATION
     Dosage: 800 MG, UNK
     Route: 065
  2. BISOPROLOL FUMARATE. [Concomitant]
     Active Substance: BISOPROLOL FUMARATE
     Indication: PRODUCT USED FOR UNKNOWN INDICATION
     Dosage: 5 MG, UNK
     Route: 065
  3. EXFORGE [Suspect]
     Active Substance: AMLODIPINE BESYLATE\VALSARTAN
     Indication: HYPERTENSION
     Dosage: 1 DF, QD
     Route: 065
     Dates: start: 2013, end: 20151117
  4. GALVUS [Suspect]
     Active Substance: VILDAGLIPTIN
     Indication: DIABETES MELLITUS
     Dosage: 50 MG, UNK
     Route: 065
     Dates: start: 2013

REACTIONS (8)
  - Arrhythmia [Recovered/Resolved]
  - Dizziness [Unknown]
  - Malaise [Unknown]
  - Hypertension [Recovered/Resolved]
  - Abdominal pain [Recovered/Resolved]
  - Tachycardia [Recovered/Resolved]
  - Headache [Recovered/Resolved]
  - Neck pain [Recovered/Resolved]

NARRATIVE: CASE EVENT DATE: 20151124
